FAERS Safety Report 12354843 (Version 2)
Quarter: 2016Q4

REPORT INFORMATION
  Report Type: Spontaneous
  Country: JP (occurrence: JP)
  Receive Date: 20160511
  Receipt Date: 20161216
  Transmission Date: 20170207
  Serious: Yes (Other)
  Sender: FDA-Public Use
  Company Number: JP-AMGEN-JPNSP2016059791

PATIENT
  Age: 68 Year
  Sex: Female
  Weight: 45 kg

DRUGS (17)
  1. ISOTONIC SODIUM CHLORIDE SOLUTION [Concomitant]
     Active Substance: SODIUM CHLORIDE
     Dosage: 250 ML, QD
     Route: 042
     Dates: start: 20150709, end: 20150709
  2. SULBACILLIN [Concomitant]
     Active Substance: AMPICILLIN SODIUM\SULBACTAM SODIUM
     Indication: PROPHYLAXIS
     Dosage: 0.75 MG, BID
     Route: 041
     Dates: start: 20150714, end: 20150714
  3. DEXART [Concomitant]
     Active Substance: DEXAMETHASONE SODIUM PHOSPHATE
     Dosage: 6.6 MG, QD
     Route: 065
     Dates: start: 20150711, end: 20150712
  4. DEXART [Concomitant]
     Active Substance: DEXAMETHASONE SODIUM PHOSPHATE
     Dosage: 8.25 MG, QD
     Route: 065
     Dates: start: 20150709, end: 20150709
  5. CISPLATIN. [Concomitant]
     Active Substance: CISPLATIN
     Indication: LIP AND/OR ORAL CAVITY CANCER
     Dosage: 41 MG, QD
     Route: 041
     Dates: start: 20150709, end: 20150712
  6. ISOTONIC SODIUM CHLORIDE SOLUTION [Concomitant]
     Active Substance: SODIUM CHLORIDE
     Dosage: 500 ML, BID
     Route: 042
     Dates: start: 20150710, end: 20150713
  7. DOCETAXEL. [Concomitant]
     Active Substance: DOCETAXEL
     Indication: LIP AND/OR ORAL CAVITY CANCER
     Dosage: 83 MG, QD
     Route: 041
     Dates: start: 20150709, end: 20150709
  8. DEXTROSE. [Concomitant]
     Active Substance: DEXTROSE
     Dosage: 500 ML, BID
     Route: 042
     Dates: start: 20150708, end: 20150708
  9. PROEMEND [Concomitant]
     Active Substance: FOSAPREPITANT
     Dosage: 150 MG, QD
     Route: 041
     Dates: start: 20150709, end: 20150709
  10. ALOXI [Concomitant]
     Active Substance: PALONOSETRON HYDROCHLORIDE
     Dosage: 0.75 MG, QD
     Route: 042
     Dates: start: 20150709, end: 20150709
  11. G-LASTA [Suspect]
     Active Substance: PEGFILGRASTIM
     Indication: COLONY STIMULATING FACTOR PROPHYLAXIS
     Dosage: 3.6 MG, QD
     Route: 058
     Dates: start: 20150714, end: 20150714
  12. ISOTONIC SODIUM CHLORIDE SOLUTION [Concomitant]
     Active Substance: SODIUM CHLORIDE
     Dosage: 100 ML, QD
     Route: 042
     Dates: start: 20150710, end: 20150712
  13. ASPARA POTASSIUM [Concomitant]
     Active Substance: POTASSIUM ASPARTATE
     Dosage: 10 MEQ, BID
     Route: 041
     Dates: start: 20150708, end: 20150708
  14. MANNITOL. [Concomitant]
     Active Substance: MANNITOL
     Dosage: 300 ML, QD
     Route: 041
     Dates: start: 20150708, end: 20150708
  15. 5-FU                               /00098801/ [Concomitant]
     Active Substance: FLUOROURACIL
     Indication: LIP AND/OR ORAL CAVITY CANCER
     Dosage: 1039 MG, QD
     Route: 041
     Dates: start: 20150709, end: 20150712
  16. ISOTONIC SODIUM CHLORIDE SOLUTION [Concomitant]
     Active Substance: SODIUM CHLORIDE
     Dosage: 500 ML, BID
     Route: 042
     Dates: start: 20150708, end: 20150708
  17. DEXART [Concomitant]
     Active Substance: DEXAMETHASONE SODIUM PHOSPHATE
     Dosage: 3.3 MG, QD
     Route: 065
     Dates: start: 20150710, end: 20150710

REACTIONS (1)
  - Febrile neutropenia [Recovered/Resolved]
